FAERS Safety Report 19823179 (Version 1)
Quarter: 2021Q3

REPORT INFORMATION
  Report Type: Report from Study
  Country: US (occurrence: US)
  Receive Date: 20210913
  Receipt Date: 20210913
  Transmission Date: 20211014
  Serious: Yes (Hospitalization, Other)
  Sender: FDA-Public Use
  Company Number: US-TAKEDA-2015BAX032262

PATIENT
  Sex: Female

DRUGS (2)
  1. HUMAN NORMAL IMMUNOGLOBULIN [Suspect]
     Active Substance: HUMAN IMMUNOGLOBULIN G
     Indication: SECONDARY IMMUNODEFICIENCY
     Dosage: UNK
     Route: 042
  2. HUMAN NORMAL IMMUNOGLOBULIN; LIQUID [Suspect]
     Active Substance: HUMAN IMMUNOGLOBULIN G
     Indication: PRIMARY IMMUNODEFICIENCY SYNDROME
     Dosage: UNK UNK, Q3WEEKS
     Route: 042

REACTIONS (10)
  - Pneumonia [Unknown]
  - Staphylococcal infection [Unknown]
  - Multiple fractures [Unknown]
  - Peripheral swelling [Unknown]
  - Skin infection [Unknown]
  - Illness [Unknown]
  - Asthenia [Unknown]
  - Hernia [Unknown]
  - Stevens-Johnson syndrome [Unknown]
  - Meningitis [Unknown]
